FAERS Safety Report 5765256-1 (Version None)
Quarter: 2008Q2

REPORT INFORMATION
  Report Type: 
  Country: None (occurrence: None)
  Receive Date: 20080611
  Receipt Date: 20080527
  Transmission Date: 20081010
  Serious: Yes (Other)
  Sender: FDA-Public Use
  Company Number: US-BAYER-200812038BCC

PATIENT
  Sex: Female
  Weight: 51 kg

DRUGS (8)
  1. ASPIRIN [Suspect]
     Indication: DRUG USE FOR UNKNOWN INDICATION
     Dosage: UNIT DOSE: 81 MG
     Route: 048
  2. ALEVE [Suspect]
     Indication: ARTHRALGIA
     Dosage: TOTAL DAILY DOSE: 220 MG  UNIT DOSE: 220 MG
     Route: 048
  3. ONE A DAY WOMENS [Suspect]
     Indication: VITAMIN SUPPLEMENTATION
     Route: 048
  4. ASPIRIN [Suspect]
     Indication: DRUG USE FOR UNKNOWN INDICATION
  5. ONE A DAY WOMENS 50 PLUS ADVANTAGE [Suspect]
     Indication: VITAMIN SUPPLEMENTATION
     Dates: start: 20080418
  6. FISH OIL [Concomitant]
  7. STRESSTAB [Concomitant]
  8. GLUCOSAMINE [Concomitant]

REACTIONS (2)
  - DEAFNESS [None]
  - TINNITUS [None]
